FAERS Safety Report 23664548 (Version 1)
Quarter: 2024Q1

REPORT INFORMATION
  Report Type: Spontaneous
  Country: US (occurrence: None)
  Receive Date: 20240322
  Receipt Date: 20240322
  Transmission Date: 20240409
  Serious: Yes (unspecified)
  Sender: FDA-Public Use
  Company Number: None

PATIENT
  Age: 26 Year
  Sex: Male

DRUGS (2)
  1. CANNABIDIOL\HERBALS [Suspect]
     Active Substance: CANNABIDIOL\HERBALS
  2. TYLENOL [Suspect]
     Active Substance: ACETAMINOPHEN

REACTIONS (3)
  - Overdose [None]
  - Somnolence [None]
  - Hypokinesia [None]

NARRATIVE: CASE EVENT DATE: 20240307
